FAERS Safety Report 16771913 (Version 1)
Quarter: 2019Q3

REPORT INFORMATION
  Report Type: Spontaneous
  Country: US (occurrence: US)
  Receive Date: 20190904
  Receipt Date: 20190904
  Transmission Date: 20191005
  Serious: No
  Sender: FDA-Public Use
  Company Number: US-PTC THERAPEUTICS, INC.-US-2019PTC001033

PATIENT
  Sex: Male

DRUGS (1)
  1. EMFLAZA [Suspect]
     Active Substance: DEFLAZACORT
     Indication: MUSCULAR DYSTROPHY
     Dosage: 24 MG (18 MG AND 6 MG), QD
     Route: 048
     Dates: start: 20170707

REACTIONS (3)
  - Product dose omission [Unknown]
  - Gastroenteritis viral [Unknown]
  - Vomiting [Unknown]
